FAERS Safety Report 20091455 (Version 12)
Quarter: 2025Q2

REPORT INFORMATION
  Report Type: Spontaneous
  Country: US (occurrence: US)
  Receive Date: 20211119
  Receipt Date: 20250630
  Transmission Date: 20250716
  Serious: No
  Sender: PFIZER
  Company Number: US-PFIZER INC-202101140566

PATIENT
  Age: 54 Year
  Sex: Female

DRUGS (14)
  1. IBRANCE [Suspect]
     Active Substance: PALBOCICLIB
     Indication: Breast cancer female
     Route: 048
     Dates: start: 20190220
  2. IBRANCE [Suspect]
     Active Substance: PALBOCICLIB
     Route: 048
     Dates: start: 20200812
  3. IBRANCE [Suspect]
     Active Substance: PALBOCICLIB
     Route: 048
     Dates: start: 20201215
  4. IBRANCE [Suspect]
     Active Substance: PALBOCICLIB
     Route: 048
  5. LETROZOLE [Concomitant]
     Active Substance: LETROZOLE
  6. FASLODEX [Concomitant]
     Active Substance: FULVESTRANT
  7. IMITREX [Concomitant]
     Active Substance: SUMATRIPTAN SUCCINATE
  8. CHLORHEXIDINE [Concomitant]
     Active Substance: CHLORHEXIDINE
  9. VITAMIN D NOS [Concomitant]
     Active Substance: CHOLECALCIFEROL\ERGOCALCIFEROL
  10. SELENIUM [Concomitant]
     Active Substance: SELENIUM
  11. IBUPROFEN [Concomitant]
     Active Substance: IBUPROFEN
  12. LOSARTAN POTASSIUM [Concomitant]
     Active Substance: LOSARTAN POTASSIUM
  13. METFORMIN [Concomitant]
     Active Substance: METFORMIN HYDROCHLORIDE
  14. XGEVA [Concomitant]
     Active Substance: DENOSUMAB

REACTIONS (10)
  - Alopecia [Not Recovered/Not Resolved]
  - Headache [Not Recovered/Not Resolved]
  - Stomatitis [Not Recovered/Not Resolved]
  - Fatigue [Not Recovered/Not Resolved]
  - Red blood cell count decreased [Unknown]
  - Hot flush [Unknown]
  - Arthralgia [Not Recovered/Not Resolved]
  - Pain [Unknown]
  - Cough [Unknown]
  - Diarrhoea [Not Recovered/Not Resolved]
